FAERS Safety Report 11402955 (Version 1)
Quarter: 2015Q3

REPORT INFORMATION
  Report Type: Spontaneous
  Country: US (occurrence: None)
  Receive Date: 20150812
  Receipt Date: 20150812
  Transmission Date: 20151125
  Serious: No
  Sender: FDA-Public Use
  Company Number: 1507USA009250

PATIENT
  Age: 30 Year
  Sex: Female

DRUGS (1)
  1. RAGWITEK [Suspect]
     Active Substance: AMBROSIA ARTEMISIIFOLIA POLLEN
     Indication: SEASONAL ALLERGY
     Route: 060
     Dates: start: 20150711, end: 20150716

REACTIONS (1)
  - Dysphagia [None]

NARRATIVE: CASE EVENT DATE: 20150715
